FAERS Safety Report 5857643-8 (Version None)
Quarter: 2008Q3

REPORT INFORMATION
  Report Type: 
  Country: None (occurrence: None)
  Receive Date: 20080826
  Receipt Date: 20080819
  Transmission Date: 20090109
  Serious: Yes (Hospitalization)
  Sender: FDA-Public Use
  Company Number: US-CELGENEUS-163-20785-08061703

PATIENT
  Sex: Female

DRUGS (10)
  1. THALOMID [Suspect]
     Indication: MULTIPLE MYELOMA
     Route: 048
     Dates: start: 20080318, end: 20080301
  2. THALOMID [Suspect]
     Route: 048
     Dates: start: 20080301, end: 20080401
  3. THALOMID [Suspect]
     Route: 048
     Dates: start: 20080401, end: 20080401
  4. THALOMID [Suspect]
     Route: 048
     Dates: start: 20080514
  5. VELCADE [Concomitant]
     Indication: MULTIPLE MYELOMA
     Route: 065
  6. DEXAMETHASONE TAB [Concomitant]
     Indication: MULTIPLE MYELOMA
     Route: 065
  7. POTASSIUM CHLORIDE [Concomitant]
     Indication: DRUG USE FOR UNKNOWN INDICATION
     Route: 065
  8. COUMADIN [Concomitant]
     Indication: DRUG USE FOR UNKNOWN INDICATION
     Route: 065
  9. LASIX [Concomitant]
     Indication: DRUG USE FOR UNKNOWN INDICATION
     Route: 065
  10. FERROUS SULFATE TAB [Concomitant]
     Indication: DRUG USE FOR UNKNOWN INDICATION
     Route: 048

REACTIONS (2)
  - BLOOD POTASSIUM DECREASED [None]
  - GAIT DISTURBANCE [None]
